FAERS Safety Report 8177681-2 (Version None)
Quarter: 2012Q1

REPORT INFORMATION
  Report Type: 
  Country: None (occurrence: None)
  Receive Date: 20120301
  Receipt Date: 20120225
  Transmission Date: 20120608
  Serious: Yes (Hospitalization)
  Sender: FDA-Public Use
  Company Number: PHHY2012MX017299

PATIENT
  Sex: Female

DRUGS (4)
  1. ZOLEDRONOC ACID [Suspect]
     Indication: OSTEOPOROSIS
     Dosage: 5 MG/ 100 ML ONCE A YEAR
     Route: 042
     Dates: start: 20090201
  2. KETOPROFEN [Concomitant]
     Indication: PAIN
     Dosage: ONCE A DAY
     Dates: start: 20120101
  3. LYRICA [Concomitant]
     Dosage: ONCE A DAY
  4. EURITOS [Concomitant]
     Indication: THYROID DISORDER
     Dosage: UNK UKN, UNK
     Dates: start: 20060201

REACTIONS (2)
  - PAIN [None]
  - TOOTH DISORDER [None]
